FAERS Safety Report 5283733-7 (Version None)
Quarter: 2007Q2

REPORT INFORMATION
  Report Type: 
  Country: None (occurrence: None)
  Receive Date: 20070402
  Receipt Date: 20070320
  Transmission Date: 20071010
  Serious: Yes (Other)
  Sender: FDA-Public Use
  Company Number: PHBS2007IN05059

PATIENT
  Sex: Female
  Weight: 45 kg

DRUGS (3)
  1. METHYLPHENIDATE HCL [Suspect]
     Indication: ATTENTION DEFICIT/HYPERACTIVITY DISORDER
     Dosage: 5 MG/DAY
     Route: 065
  2. METHYLPHENIDATE HCL [Suspect]
     Dosage: 20 MG/DAY
     Route: 065
  3. METHYLPHENIDATE HCL [Suspect]
     Dosage: 45 MG/DAY
     Route: 065

REACTIONS (2)
  - HYPERTENSION [None]
  - POLYCYSTIC OVARIES [None]
